FAERS Safety Report 4992832-6 (Version None)
Quarter: 2006Q2

REPORT INFORMATION
  Report Type: 
  Country: None (occurrence: None)
  Receive Date: 20060504
  Receipt Date: 20060419
  Transmission Date: 20061013
  Serious: Yes (Hospitalization)
  Sender: FDA-Public Use
  Company Number: JP-MERCK-0604USA03571M

PATIENT

DRUGS (2)
  1. INDOCIN [Suspect]
     Indication: UTERINE HYPERTONUS
     Route: 054
  2. RITODRINE HYDROCHLORIDE [Concomitant]
     Route: 042

REACTIONS (1)
  - DRUG INEFFECTIVE [None]
